FAERS Safety Report 9511387 (Version 1)
Quarter: 2013Q1

REPORT INFORMATION
  Report Type: Spontaneous
  Country: US (occurrence: None)
  Receive Date: 20130305
  Receipt Date: 20130305
  Transmission Date: 20140127
  Serious: Yes (Other)
  Sender: FDA-Public Use
  Company Number: 163-21880-11100921

PATIENT
  Age: 60 Year
  Sex: Male
  Weight: 83.92 kg

DRUGS (1)
  1. REVLIMID (LENALIDOMIDE) (15 MILLIGRAM, CAPSULES) [Suspect]
     Indication: PLASMA CELL MYELOMA
     Dosage: 15 MG, FOR 14 DAYS, PO
     Route: 048
     Dates: start: 20110803, end: 20111005

REACTIONS (3)
  - Hypersensitivity [None]
  - Angioedema [None]
  - Rash [None]
